FAERS Safety Report 16828005 (Version 1)
Quarter: 2019Q3

REPORT INFORMATION
  Report Type: Other
  Country: US (occurrence: US)
  Receive Date: 20190919
  Receipt Date: 20190919
  Transmission Date: 20191005
  Serious: No
  Sender: FDA-Public Use
  Company Number: US-MAYNE PHARMA-2019MYN000066

PATIENT

DRUGS (1)
  1. LOW-OGESTREL [Suspect]
     Active Substance: ETHINYL ESTRADIOL\NORGESTREL
     Indication: PRODUCT USED FOR UNKNOWN INDICATION

REACTIONS (8)
  - Menorrhagia [Unknown]
  - Insomnia [Unknown]
  - Dysmenorrhoea [Unknown]
  - Acne [Unknown]
  - Abdominal pain lower [Unknown]
  - Abdominal distension [Unknown]
  - Product substitution issue [Unknown]
  - Skin irritation [Unknown]
